FAERS Safety Report 13499269 (Version 1)
Quarter: 2017Q2

REPORT INFORMATION
  Report Type: Spontaneous
  Country: US (occurrence: US)
  Receive Date: 20170501
  Receipt Date: 20170501
  Transmission Date: 20170830
  Serious: Yes (Hospitalization)
  Sender: FDA-Public Use
  Company Number: US-LPDUSPRD-20170458

PATIENT
  Age: 60 Year
  Sex: Female

DRUGS (1)
  1. EPINEPHRINE INJECTION, USP (1071-25) [Suspect]
     Active Substance: EPINEPHRINE
     Dosage: 3 MG
     Route: 030

REACTIONS (7)
  - Hypertension [Recovered/Resolved]
  - ECG signs of myocardial ischaemia [Recovered/Resolved]
  - Pulmonary oedema [Recovered/Resolved]
  - Tachycardia [Recovered/Resolved]
  - Hypotension [Recovered/Resolved]
  - Troponin increased [Recovered/Resolved]
  - Left ventricular dysfunction [Recovered/Resolved]
